FAERS Safety Report 9458496 (Version 1)
Quarter: 2013Q3

REPORT INFORMATION
  Report Type: Spontaneous
  Country: US (occurrence: US)
  Receive Date: 20130814
  Receipt Date: 20130814
  Transmission Date: 20140515
  Serious: Yes (Other)
  Sender: FDA-Public Use
  Company Number: US-SANOFI-AVENTIS-2013SA044443

PATIENT
  Age: 81 Year
  Sex: Male
  Weight: 66.67 kg

DRUGS (5)
  1. AMBIEN [Suspect]
     Indication: SLEEP DISORDER
     Dosage: 9 PM TO 11 PM
     Route: 048
     Dates: start: 200608
  2. ATENOLOL [Concomitant]
     Indication: CARDIAC DISORDER
     Dates: start: 200810
  3. HYDROCHLOROTHIAZIDE [Concomitant]
     Indication: FLUID RETENTION
     Dates: start: 200810
  4. METHOCARBAMOL [Concomitant]
     Indication: MUSCLE SPASMS
     Dates: start: 200810
  5. ROSUVASTATIN [Concomitant]
     Dates: start: 200810

REACTIONS (5)
  - Nightmare [Not Recovered/Not Resolved]
  - Drug dependence [Unknown]
  - Insomnia [Not Recovered/Not Resolved]
  - Wrong technique in drug usage process [Unknown]
  - Drug ineffective [Unknown]
